FAERS Safety Report 24573895 (Version 1)
Quarter: 2024Q4

REPORT INFORMATION
  Report Type: Spontaneous
  Country: ES (occurrence: ES)
  Receive Date: 20241104
  Receipt Date: 20241104
  Transmission Date: 20250115
  Serious: Yes (Hospitalization, Other)
  Sender: UCB
  Company Number: ES-UCBSA-2024056147

PATIENT
  Age: 47 Year
  Sex: Female

DRUGS (5)
  1. BIMEKIZUMAB [Suspect]
     Active Substance: BIMEKIZUMAB
     Indication: Axial spondyloarthritis
     Dosage: UNK
     Dates: start: 20240426
  2. DEFLAZACORT [Concomitant]
     Active Substance: DEFLAZACORT
     Indication: Iridocyclitis
  3. SULFASALAZINE [Concomitant]
     Active Substance: SULFASALAZINE
     Indication: Iridocyclitis
     Dosage: 2 GRAM, ONCE DAILY (QD)
  4. SULFASALAZINE [Concomitant]
     Active Substance: SULFASALAZINE
     Indication: Pain
  5. DICLOFENAC SODIUM [Concomitant]
     Active Substance: DICLOFENAC SODIUM
     Indication: Pain

REACTIONS (1)
  - Myasthenia gravis [Unknown]

NARRATIVE: CASE EVENT DATE: 20241001
